FAERS Safety Report 10693494 (Version 5)
Quarter: 2017Q1

REPORT INFORMATION
  Report Type: Spontaneous
  Country: BR (occurrence: BR)
  Receive Date: 20150106
  Receipt Date: 20170324
  Transmission Date: 20170428
  Serious: Yes (Other)
  Sender: FDA-Public Use
  Company Number: BR-PFIZER INC-2014363213

PATIENT
  Age: 80 Year
  Sex: Male
  Weight: 50 kg

DRUGS (9)
  1. XALACOM [Suspect]
     Active Substance: LATANOPROST\TIMOLOL MALEATE
     Dosage: ONE DROP IN EACH EYE, DAILY
     Route: 047
     Dates: start: 20141116
  2. MEGA MEN [Concomitant]
     Active Substance: MINERALS\VITAMINS
  3. ALLEGRA [Concomitant]
     Active Substance: FEXOFENADINE HYDROCHLORIDE
     Indication: PSORIASIS
     Dosage: 120 MG, 1X/DAY (ONCE AT NIGHT)
  4. XALACOM [Suspect]
     Active Substance: LATANOPROST\TIMOLOL MALEATE
     Indication: GLAUCOMA
     Dosage: ONE DROP EACH EYE, 1X/DAY (BEFORE SLEEPING)
     Route: 047
     Dates: end: 20141006
  5. REFRESH [Concomitant]
     Active Substance: UNSPECIFIED INGREDIENT
  6. HYABAK [Concomitant]
     Active Substance: HYALURONATE SODIUM
  7. XALATAN [Suspect]
     Active Substance: LATANOPROST
     Dosage: 1 DROP EACH EYE, DAILY
     Route: 047
  8. XALATAN [Suspect]
     Active Substance: LATANOPROST
     Indication: GLAUCOMA
     Dosage: ONE DROP  EACH EYE, 1X/DAY (BEFORE SLEEPING)
     Route: 047
     Dates: start: 2011, end: 2013
  9. SINVASCOR [Concomitant]
     Active Substance: SIMVASTATIN
     Indication: BLOOD CHOLESTEROL ABNORMAL
     Dosage: 10 MG, UNK

REACTIONS (11)
  - Incorrect product storage [Unknown]
  - Visual impairment [Not Recovered/Not Resolved]
  - Cataract [Unknown]
  - Product packaging confusion [Recovered/Resolved]
  - Dry eye [Not Recovered/Not Resolved]
  - Vision blurred [Not Recovered/Not Resolved]
  - Drug administration error [Unknown]
  - Wrong drug administered [Recovered/Resolved]
  - Drug dispensing error [Recovered/Resolved]
  - Ocular discomfort [Not Recovered/Not Resolved]
  - Eye irritation [Recovered/Resolved]

NARRATIVE: CASE EVENT DATE: 20141006
